FAERS Safety Report 16698149 (Version 1)
Quarter: 2019Q3

REPORT INFORMATION
  Report Type: Spontaneous
  Country: CN (occurrence: CN)
  Receive Date: 20190813
  Receipt Date: 20190813
  Transmission Date: 20191004
  Serious: Yes (Other)
  Sender: FDA-Public Use
  Company Number: CN-PFIZER INC-2019341547

PATIENT
  Age: 64 Year
  Sex: Male

DRUGS (2)
  1. VFEND [Suspect]
     Active Substance: VORICONAZOLE
     Indication: CHEST X-RAY ABNORMAL
     Dosage: 200 MG, 2X/DAY
     Route: 048
     Dates: start: 20190708, end: 20190709
  2. KE LE BI TUO [Concomitant]
     Indication: CHEST X-RAY ABNORMAL
     Dosage: 500 MG, 1X/DAY
     Route: 041
     Dates: start: 20190705, end: 20190719

REACTIONS (8)
  - Macular degeneration [Unknown]
  - Cataract [Unknown]
  - Flat anterior chamber of eye [Unknown]
  - Vision blurred [Recovering/Resolving]
  - Off label use [Unknown]
  - Xanthopsia [Recovering/Resolving]
  - Hypermetropia [Unknown]
  - Product use in unapproved indication [Unknown]

NARRATIVE: CASE EVENT DATE: 20190708
